FAERS Safety Report 11936663 (Version 2)
Quarter: 2016Q1

REPORT INFORMATION
  Report Type: Report from Study
  Country: BG (occurrence: BG)
  Receive Date: 20160121
  Receipt Date: 20160204
  Transmission Date: 20160526
  Serious: No
  Sender: FDA-Public Use
  Company Number: BG-BAXTER-2016BAX002421

PATIENT

DRUGS (8)
  1. SODIUM CHLORIDE BAXTER 0,9% SOLUTION FOR INFUSION [Suspect]
     Active Substance: SODIUM CHLORIDE
     Indication: MULTIPLE SCLEROSIS
  2. FRAXIPARINE [Concomitant]
     Active Substance: NADROPARIN CALCIUM
     Indication: ANTICOAGULANT THERAPY
     Dosage: 0.1 ML/KG
     Route: 065
  3. FRAXIPARINE [Concomitant]
     Active Substance: NADROPARIN CALCIUM
     Indication: BLOOD FIBRINOGEN DECREASED
  4. HUMAN ALBUMIN [Suspect]
     Active Substance: ALBUMIN (HUMAN)
     Indication: MULTIPLE SCLEROSIS
  5. SODIUM CHLORIDE BAXTER 0,9% SOLUTION FOR INFUSION [Suspect]
     Active Substance: SODIUM CHLORIDE
     Indication: OFF LABEL USE
  6. SODIUM CHLORIDE BAXTER 0,9% SOLUTION FOR INFUSION [Suspect]
     Active Substance: SODIUM CHLORIDE
     Indication: TRANSFUSION
     Route: 065
  7. HEPARIN [Concomitant]
     Active Substance: HEPARIN SODIUM
     Indication: FLUSHING
     Dosage: 7500-1000 IU
     Route: 065
  8. HUMAN ALBUMIN [Suspect]
     Active Substance: ALBUMIN (HUMAN)
     Indication: TRANSFUSION
     Route: 065

REACTIONS (1)
  - Blood pressure systolic decreased [Unknown]
